FAERS Safety Report 14427457 (Version 2)
Quarter: 2019Q1

REPORT INFORMATION
  Report Type: Spontaneous
  Country: US (occurrence: US)
  Receive Date: 20180123
  Receipt Date: 20190303
  Transmission Date: 20190417
  Serious: No
  Sender: FDA-Public Use
  Company Number: US-IMPAX LABORATORIES, INC-2017-IPXL-03731

PATIENT
  Age: 82 Year
  Sex: Female

DRUGS (4)
  1. LUTEIN [Concomitant]
     Active Substance: LUTEIN
     Indication: MACULAR DEGENERATION
     Dosage: UNK
     Route: 065
  2. RYTARY [Suspect]
     Active Substance: CARBIDOPA\LEVODOPA
     Indication: PARKINSON^S DISEASE
     Dosage: 36.25MG/145MG, 2 CAPSULE QID (240 CAPS FOR 30 DAYS)
     Route: 048
  3. VITAMIN A [Concomitant]
     Active Substance: VITAMIN A
     Indication: MACULAR DEGENERATION
     Dosage: UNK
     Route: 065
  4. ZEAXANTHIN [Concomitant]
     Active Substance: ZEAXANTHIN
     Indication: MACULAR DEGENERATION
     Dosage: UNK
     Route: 065

REACTIONS (1)
  - Drug ineffective [Unknown]
